FAERS Safety Report 5317258-7 (Version None)
Quarter: 2007Q2

REPORT INFORMATION
  Report Type: 
  Country: None (occurrence: None)
  Receive Date: 20070504
  Receipt Date: 20070424
  Transmission Date: 20071010
  Serious: Yes (Life-Threatening)
  Sender: FDA-Public Use
  Company Number: ES-PFIZER INC-2007032927

PATIENT
  Age: 60 Year
  Sex: Female

DRUGS (6)
  1. LYRICA [Suspect]
     Route: 048
  2. METAMIZOLE [Suspect]
     Route: 048
     Dates: start: 20061115, end: 20070307
  3. IBUPROFEN [Suspect]
     Route: 048
     Dates: start: 20070207, end: 20070307
  4. ANAFRANIL [Suspect]
     Indication: DYSTHYMIC DISORDER
     Route: 048
     Dates: start: 20010101, end: 20070307
  5. LEXATIN [Suspect]
     Indication: ANXIETY
  6. DURAGESIC-100 [Concomitant]
     Route: 062
     Dates: start: 20010101, end: 20070307

REACTIONS (4)
  - AGRANULOCYTOSIS [None]
  - PANCYTOPENIA [None]
  - SEPSIS [None]
  - SHOCK [None]
